FAERS Safety Report 22590613 (Version 1)
Quarter: 2023Q2

REPORT INFORMATION
  Report Type: Spontaneous
  Country: US (occurrence: None)
  Receive Date: 20230610
  Receipt Date: 20230610
  Transmission Date: 20230722
  Serious: Yes (Other)
  Sender: FDA-Public Use
  Company Number: None

PATIENT
  Age: 77 Year
  Sex: Male

DRUGS (1)
  1. NUPLAZID [Suspect]
     Active Substance: PIMAVANSERIN TARTRATE
     Dates: start: 20230511, end: 20230610

REACTIONS (4)
  - Pharyngeal swelling [None]
  - Drooling [None]
  - Oropharyngeal pain [None]
  - Speech disorder [None]

NARRATIVE: CASE EVENT DATE: 20230609
